FAERS Safety Report 19923300 (Version 3)
Quarter: 2021Q4

REPORT INFORMATION
  Report Type: Report from Study
  Country: BR (occurrence: BR)
  Receive Date: 20211005
  Receipt Date: 20211206
  Transmission Date: 20220303
  Serious: Yes (Death, Life-Threatening, Hospitalization, Other)
  Sender: FDA-Public Use
  Company Number: BR-BRISTOL-MYERS SQUIBB COMPANY-BMS-2021-100990

PATIENT
  Age: 72 Year
  Sex: Male
  Weight: 77 kg

DRUGS (21)
  1. INVESTIGATIONAL PRODUCT [Suspect]
     Active Substance: INVESTIGATIONAL PRODUCT
     Indication: Malignant melanoma
     Dosage: 0.50 MILLIGRAM
     Route: 042
     Dates: start: 20210803, end: 20210803
  2. NIVOLUMAB [Suspect]
     Active Substance: NIVOLUMAB
     Indication: Malignant melanoma
     Dosage: 360 MILLIGRAM
     Route: 042
     Dates: start: 20210803, end: 20210803
  3. PROPOFOL [Concomitant]
     Active Substance: PROPOFOL
     Indication: Myositis
     Dosage: 1 DOSAGE FORM= 10 UNITS NOS
     Route: 042
     Dates: start: 20210913, end: 20210930
  4. METFORMIN [Concomitant]
     Active Substance: METFORMIN HYDROCHLORIDE
     Indication: Product used for unknown indication
     Dosage: 1700 MILLIGRAM
     Route: 048
     Dates: start: 1994
  5. FENTANYL [Concomitant]
     Active Substance: FENTANYL
     Indication: Myositis
     Dosage: 1 DOSAGE FORM= 4 UNITS NOS
     Route: 042
     Dates: start: 20210913, end: 20210930
  6. FENTANYL [Concomitant]
     Active Substance: FENTANYL
     Dosage: 1 MILLIGRAM
     Route: 042
     Dates: start: 20210917, end: 20210930
  7. ENOXAPARIN [Concomitant]
     Active Substance: ENOXAPARIN
     Indication: Product used for unknown indication
     Dosage: 40 MILLIGRAM
     Route: 058
     Dates: start: 20210809, end: 20210930
  8. HUMAN IMMUNOGLOBULIN G [Concomitant]
     Active Substance: HUMAN IMMUNOGLOBULIN G
     Indication: Myositis
     Dosage: 35 MILLIGRAM
     Route: 042
     Dates: start: 20210915, end: 20210918
  9. PREDNISONE [Concomitant]
     Active Substance: PREDNISONE
     Indication: Myositis
     Dosage: 60 MILLIGRAM
     Route: 048
     Dates: start: 20210916
  10. PRECEDEX [Concomitant]
     Active Substance: DEXMEDETOMIDINE HYDROCHLORIDE
     Indication: Myositis
     Dosage: 1 MILLIGRAM
     Route: 042
     Dates: start: 20210916, end: 20210930
  11. MIRTAZAPINE [Concomitant]
     Active Substance: MIRTAZAPINE
     Indication: Depression
     Dosage: 15 MILLIGRAM
     Route: 048
     Dates: start: 20210810, end: 20210930
  12. METAMIZOLE SODIUM [Concomitant]
     Active Substance: METAMIZOLE SODIUM
     Indication: Mucosal inflammation
     Dosage: 4000 MILLIGRAM
     Route: 048
     Dates: start: 20210830, end: 20210930
  13. SODIUM CHLORIDE [Concomitant]
     Active Substance: SODIUM CHLORIDE
     Indication: Mucosal inflammation
     Dosage: 500 MILLIGRAM
     Route: 042
     Dates: start: 20210908, end: 20210930
  14. METHYLPREDNISOLONE [Concomitant]
     Active Substance: METHYLPREDNISOLONE
     Indication: Myositis
     Dosage: 120 MILLIGRAM
     Route: 042
     Dates: start: 20210911, end: 20210913
  15. FLUCONAZOLE [Concomitant]
     Active Substance: FLUCONAZOLE
     Indication: Mucosal inflammation
     Dosage: 200 MILLIGRAM
     Route: 042
     Dates: start: 20210909, end: 20210930
  16. AMOXICILLIN [Concomitant]
     Active Substance: AMOXICILLIN
     Indication: Helicobacter infection
     Dosage: 2000 MILLIGRAM
     Route: 042
     Dates: start: 20210909, end: 20210910
  17. AMOXICILLIN [Concomitant]
     Active Substance: AMOXICILLIN
     Indication: Oesophageal candidiasis
  18. CLARITHROMYCIN [Concomitant]
     Active Substance: CLARITHROMYCIN
     Indication: Helicobacter infection
     Dosage: 1000 MILLIGRAM
     Route: 042
     Dates: start: 20210909, end: 20210910
  19. VANCOMYCIN [Concomitant]
     Active Substance: VANCOMYCIN
     Indication: Tracheobronchitis
     Dosage: 1000 MILLIGRAM
     Route: 042
     Dates: start: 20210910, end: 20210930
  20. VANCOMYCIN [Concomitant]
     Active Substance: VANCOMYCIN
     Indication: Abscess soft tissue
  21. IVERMECTIN [Concomitant]
     Active Substance: IVERMECTIN
     Indication: Myositis
     Dosage: 12 MILLIGRAM
     Route: 048
     Dates: start: 20210910, end: 20210910

REACTIONS (1)
  - Guillain-Barre syndrome [Fatal]

NARRATIVE: CASE EVENT DATE: 20210922
